FAERS Safety Report 21391882 (Version 5)
Quarter: 2023Q1

REPORT INFORMATION
  Report Type: Spontaneous
  Country: JP (occurrence: JP)
  Receive Date: 20220929
  Receipt Date: 20230318
  Transmission Date: 20230418
  Serious: Yes (Death, Life-Threatening)
  Sender: FDA-Public Use
  Company Number: JP-NOVARTISPH-NVSC2022JP220473

PATIENT
  Age: 57 Year
  Sex: Male
  Weight: 56.2 kg

DRUGS (3)
  1. LUTATHERA [Suspect]
     Active Substance: LUTETIUM OXODOTREOTIDE LU-177
     Indication: Vipoma
     Dosage: 7.4 GBQ
     Route: 042
     Dates: start: 20220915, end: 20220915
  2. ARGININE\LYSINE [Suspect]
     Active Substance: ARGININE\LYSINE
     Indication: Pancreatic neuroendocrine tumour
     Dosage: UNK
     Route: 042
     Dates: start: 20220915
  3. PALONOSETRON HYDROCHLORIDE [Concomitant]
     Active Substance: PALONOSETRON HYDROCHLORIDE
     Indication: Prophylaxis of nausea and vomiting
     Dosage: UNK
     Route: 042

REACTIONS (5)
  - Hypotensive crisis [Fatal]
  - Multiple organ dysfunction syndrome [Fatal]
  - Blood pressure decreased [Fatal]
  - Diarrhoea [Fatal]
  - Endocrine pancreatic disorder [Fatal]

NARRATIVE: CASE EVENT DATE: 20220916
